FAERS Safety Report 24228757 (Version 1)
Quarter: 2024Q3

REPORT INFORMATION
  Report Type: Spontaneous
  Country: US (occurrence: None)
  Receive Date: 20240819
  Receipt Date: 20240819
  Transmission Date: 20241017
  Serious: Yes (Hospitalization)
  Sender: Public
  Company Number: None

PATIENT
  Age: 69 Year
  Sex: Female
  Weight: 58.5 kg

DRUGS (2)
  1. HERBALS [Suspect]
     Active Substance: HERBALS
     Indication: Therapeutic procedure
     Dosage: 30 CAPSULES TWICE A DAY ORAL
     Route: 048
  2. DEXAMETHASONE [Concomitant]
     Active Substance: DEXAMETHASONE

REACTIONS (3)
  - Vomiting [None]
  - Adrenal insufficiency [None]
  - Product use in unapproved indication [None]

NARRATIVE: CASE EVENT DATE: 20240505
